FAERS Safety Report 6014934-8 (Version None)
Quarter: 2008Q4

REPORT INFORMATION
  Report Type: 
  Country: None (occurrence: None)
  Receive Date: 20081219
  Receipt Date: 20081215
  Transmission Date: 20090506
  Serious: Yes (Hospitalization, Other)
  Sender: FDA-Public Use
  Company Number: AU-ABBOTT-08P-008-0493186-00

PATIENT
  Sex: Male

DRUGS (4)
  1. VALPROATE SODIUM [Suspect]
     Indication: EPILEPSY
     Route: 048
     Dates: end: 20081101
  2. VALPROATE SODIUM [Suspect]
     Route: 048
     Dates: start: 20081101
  3. ENTECAVIR [Concomitant]
     Indication: HEPATITIS
     Route: 048
  4. INVESTIGATIONAL PRODUCT [Concomitant]
     Indication: DRUG USE FOR UNKNOWN INDICATION
     Dates: start: 20070312

REACTIONS (6)
  - ASPIRATION [None]
  - CHOKING [None]
  - CONVULSION [None]
  - LIPASE INCREASED [None]
  - STATUS EPILEPTICUS [None]
  - TRANSAMINASES INCREASED [None]
